FAERS Safety Report 22596652 (Version 1)
Quarter: 2023Q2

REPORT INFORMATION
  Report Type: Spontaneous
  Country: US (occurrence: US)
  Receive Date: 20230613
  Receipt Date: 20230613
  Transmission Date: 20230722
  Serious: No
  Sender: FDA-Public Use
  Company Number: US-PFIZER INC-PV202300104344

PATIENT
  Age: 69 Year
  Sex: Female

DRUGS (1)
  1. NYVEPRIA [Suspect]
     Active Substance: PEGFILGRASTIM-APGF
     Dosage: 6 MG, [DIRECTIONS: INJECT 6 (SIX) MG OF NYVEPRIA, FREQUENCY: Q 21 DAYS]

REACTIONS (1)
  - Diarrhoea [Unknown]
